FAERS Safety Report 14419866 (Version 1)
Quarter: 2018Q1

REPORT INFORMATION
  Report Type: Spontaneous
  Country: US (occurrence: US)
  Receive Date: 20180121
  Receipt Date: 20180121
  Transmission Date: 20180509
  Serious: Yes (Life-Threatening, Other)
  Sender: FDA-Public Use
  Company Number: None

PATIENT
  Age: 16 Year
  Sex: Male
  Weight: 72 kg

DRUGS (3)
  1. CENTRUM MULTI-VITAMIN [Concomitant]
  2. MONTELUKAST [Suspect]
     Active Substance: MONTELUKAST SODIUM
     Indication: ASTHMA
     Dosage: ?          QUANTITY:1 TABLET(S);?
     Route: 048
     Dates: start: 20171211, end: 20171218
  3. ALBUTEROL. [Concomitant]
     Active Substance: ALBUTEROL

REACTIONS (13)
  - Erythema [None]
  - Haemoptysis [None]
  - Fear [None]
  - Thinking abnormal [None]
  - Suicidal ideation [None]
  - Myalgia [None]
  - Arthralgia [None]
  - Sleep disorder [None]
  - Anxiety [None]
  - Obsessive thoughts [None]
  - Swelling [None]
  - Epistaxis [None]
  - Abnormal dreams [None]

NARRATIVE: CASE EVENT DATE: 20171215
